FAERS Safety Report 6805197-1 (Version None)
Quarter: 2010Q2

REPORT INFORMATION
  Report Type: 
  Country: None (occurrence: None)
  Receive Date: 20100628
  Receipt Date: 20071008
  Transmission Date: 20101027
  Serious: Yes (Other)
  Sender: FDA-Public Use
  Company Number: US-PFIZER INC-2007066686

PATIENT
  Sex: Female
  Weight: 59 kg

DRUGS (5)
  1. SUTENT [Suspect]
     Indication: MALIGNANT MELANOMA
     Dates: start: 20070401, end: 20070801
  2. PAROXETINE HCL [Concomitant]
  3. BUPROPION HYDROCHLORIDE [Concomitant]
  4. ESTROGENS CONJUGATED [Concomitant]
  5. ALL OTHER THERAPEUTIC PRODUCTS [Concomitant]

REACTIONS (3)
  - HYPOALBUMINAEMIA [None]
  - HYPOTHYROIDISM [None]
  - PYREXIA [None]
